FAERS Safety Report 9837300 (Version 3)
Quarter: 2014Q1

REPORT INFORMATION
  Report Type: Spontaneous
  Country: US (occurrence: US)
  Receive Date: 20140123
  Receipt Date: 20140213
  Transmission Date: 20141002
  Serious: No
  Sender: FDA-Public Use
  Company Number: US-PFIZER INC-2012284312

PATIENT
  Age: 67 Year
  Sex: Female

DRUGS (8)
  1. FLUCONAZOLE [Suspect]
     Dosage: UNK
  2. CORTISONE [Suspect]
     Dosage: UNK
  3. MACRODANTIN [Suspect]
     Dosage: UNK
  4. VITAMIN B12 [Suspect]
     Dosage: UNK
  5. DICYCLOMINE HYDROCHLORIDE [Suspect]
     Dosage: UNK
  6. IRON [Suspect]
     Dosage: UNK
  7. EXCEDRIN (ASPIRIN/CAFFEINE/PARACETAMOL) [Suspect]
     Dosage: UNK
  8. VITAMIN D [Suspect]
     Dosage: UNK

REACTIONS (1)
  - Drug hypersensitivity [Unknown]
